FAERS Safety Report 15246780 (Version 1)
Quarter: 2018Q3

REPORT INFORMATION
  Report Type: Spontaneous
  Country: US (occurrence: US)
  Receive Date: 20180713
  Receipt Date: 20180713
  Transmission Date: 20181010
  Serious: Yes (Hospitalization)
  Sender: FDA-Public Use
  Company Number: None

PATIENT
  Age: 70 Year
  Sex: Female

DRUGS (5)
  1. AMOXICLAV [Suspect]
     Active Substance: AMOXICILLIN\CLAVULANIC ACID
  2. ADVIL [Concomitant]
     Active Substance: IBUPROFEN
  3. NITROFURANTIN [Concomitant]
     Active Substance: NITROFURANTOIN
  4. LONSURF [Suspect]
     Active Substance: TIPIRACIL HYDROCHLORIDE\TRIFLURIDINE
     Indication: COLON CANCER
     Route: 048
     Dates: start: 20180109
  5. POT CHLOR [Concomitant]

REACTIONS (1)
  - Nephrostomy [None]

NARRATIVE: CASE EVENT DATE: 20180706
